FAERS Safety Report 9614852 (Version 1)
Quarter: 2013Q4

REPORT INFORMATION
  Report Type: Spontaneous
  Country: US (occurrence: US)
  Receive Date: 20131011
  Receipt Date: 20131011
  Transmission Date: 20140711
  Serious: No
  Sender: FDA-Public Use
  Company Number: US-PFIZER INC-2013290117

PATIENT
  Age: 54 Year
  Sex: Male
  Weight: 124 kg

DRUGS (2)
  1. CHANTIX [Suspect]
     Indication: SMOKING CESSATION THERAPY
     Dosage: 0.5 MG, 1X/DAY
     Route: 048
     Dates: start: 20130523, end: 201309
  2. OXYGEN [Concomitant]
     Indication: DYSPNOEA
     Dosage: UNK
     Route: 055

REACTIONS (1)
  - Irritability [Not Recovered/Not Resolved]
